FAERS Safety Report 9333503 (Version 1)
Quarter: 2013Q2

REPORT INFORMATION
  Report Type: Spontaneous
  Country: FR (occurrence: FR)
  Receive Date: 20130606
  Receipt Date: 20130606
  Transmission Date: 20140414
  Serious: Yes (Hospitalization)
  Sender: FDA-Public Use
  Company Number: FR-SANOFI-AVENTIS-2013SA055006

PATIENT
  Sex: Female

DRUGS (5)
  1. ELOXATINE [Suspect]
     Indication: PRODUCT USED FOR UNKNOWN INDICATION
     Route: 042
     Dates: start: 20100420, end: 20101001
  2. FLUOROURACILE [Suspect]
     Indication: PRODUCT USED FOR UNKNOWN INDICATION
     Route: 042
     Dates: start: 20100420, end: 20120618
  3. IRINOTECAN [Suspect]
     Indication: PRODUCT USED FOR UNKNOWN INDICATION
     Route: 042
     Dates: start: 20111010, end: 20120618
  4. FOLINIC ACID [Concomitant]
  5. AVASTIN [Concomitant]
     Dates: start: 201110, end: 201204

REACTIONS (3)
  - Varices oesophageal [Recovering/Resolving]
  - Venoocclusive liver disease [Recovered/Resolved with Sequelae]
  - Portal hypertension [Recovered/Resolved with Sequelae]
